FAERS Safety Report 9223366 (Version 1)
Quarter: 2013Q2

REPORT INFORMATION
  Report Type: Spontaneous
  Country: DE (occurrence: DE)
  Receive Date: 20130410
  Receipt Date: 20130410
  Transmission Date: 20140414
  Serious: Yes (Other)
  Sender: FDA-Public Use
  Company Number: DE-ABBOTT-13A-062-1072939-00

PATIENT
  Age: 28 Year
  Sex: Female

DRUGS (9)
  1. ERGENYL CHRONO [Suspect]
     Indication: EPILEPSY
     Route: 048
     Dates: end: 20081231
  2. LAMOTRIGINE [Suspect]
     Indication: EPILEPSY
     Route: 048
     Dates: end: 20090206
  3. FRISIUM [Suspect]
     Indication: EPILEPSY
     Route: 048
     Dates: end: 20090213
  4. TAVOR [Concomitant]
     Indication: PRODUCT USED FOR UNKNOWN INDICATION
     Dates: start: 200809, end: 20090206
  5. LUMINAL [Concomitant]
     Indication: PRODUCT USED FOR UNKNOWN INDICATION
     Dates: end: 20090213
  6. KEPPRA [Concomitant]
     Indication: PRODUCT USED FOR UNKNOWN INDICATION
     Dates: end: 20090213
  7. PHENHYDAN [Concomitant]
     Indication: PRODUCT USED FOR UNKNOWN INDICATION
     Dates: end: 20090213
  8. VIMPAT [Concomitant]
     Indication: PRODUCT USED FOR UNKNOWN INDICATION
     Dates: end: 20090204
  9. THYROXIN [Concomitant]
     Indication: PRODUCT USED FOR UNKNOWN INDICATION
     Dates: start: 200809, end: 200902

REACTIONS (3)
  - Abortion induced [Unknown]
  - Weight decreased [Unknown]
  - Convulsion [Unknown]
